FAERS Safety Report 25912025 (Version 1)
Quarter: 2025Q4

REPORT INFORMATION
  Report Type: Report from Study
  Country: US (occurrence: US)
  Receive Date: 20251013
  Receipt Date: 20251013
  Transmission Date: 20260118
  Serious: Yes (Other)
  Sender: ALEXION PHARMACEUTICALS
  Company Number: US-AstraZeneca-CH-00966576A

PATIENT
  Sex: Female

DRUGS (3)
  1. TEZSPIRE [Suspect]
     Active Substance: TEZEPELUMAB-EKKO
     Dosage: UNK
     Route: 065
  2. TEZSPIRE [Suspect]
     Active Substance: TEZEPELUMAB-EKKO
  3. AZITHROMYCIN [Concomitant]
     Active Substance: AZITHROMYCIN
     Route: 065

REACTIONS (9)
  - Night sweats [Unknown]
  - Pneumonia [Unknown]
  - Seasonal allergy [Unknown]
  - Perennial allergy [Unknown]
  - Blood pressure systolic increased [Unknown]
  - Oropharyngeal cobble stone mucosa [Unknown]
  - Rhinorrhoea [Unknown]
  - Oropharyngeal erythema [Unknown]
  - Nasal oedema [Unknown]
